FAERS Safety Report 9847131 (Version 2)
Quarter: 2014Q1

REPORT INFORMATION
  Report Type: Spontaneous
  Country: DE (occurrence: DE)
  Receive Date: 20140127
  Receipt Date: 20140129
  Transmission Date: 20141002
  Serious: Yes (Hospitalization)
  Sender: FDA-Public Use
  Company Number: DE-GILEAD-2014-0092999

PATIENT
  Sex: Female

DRUGS (13)
  1. RANOLAZINE [Suspect]
     Indication: CORONARY ARTERY DISEASE
     Dosage: UNK
     Route: 048
     Dates: start: 20131024, end: 20131025
  2. ASS [Concomitant]
     Dosage: 100 MG, QD
  3. METOPROLOL SUCCINATE [Concomitant]
     Dosage: 47.5 MG, BID
  4. AMLODIPINE [Concomitant]
     Dosage: 5 MG, BID
  5. ISMN [Concomitant]
     Dosage: 40 MG, QD
  6. PANTOPRAZOLE SODIUM [Concomitant]
     Dosage: 40 MG, QD
  7. L-THYROXIN [Concomitant]
     Dosage: 100 ?G, QD
  8. LORAZEPAM [Concomitant]
     Dosage: 10 MG, QD
  9. MIRTAZAPINE [Concomitant]
     Dosage: 45 MG, QD
  10. CITALOPRAM [Concomitant]
     Dosage: 40 MG, QD
  11. VIGANTOLETTEN [Concomitant]
     Dosage: 2000 IU, QOD
  12. FENTANYL [Concomitant]
     Dosage: 50 ?G, Q3DAYS
  13. ZOLPIDEM [Concomitant]
     Dosage: 10 MG, QD

REACTIONS (4)
  - Hypersensitivity [Recovered/Resolved]
  - Swelling face [Recovered/Resolved]
  - Swollen tongue [Recovered/Resolved]
  - Lip swelling [Recovered/Resolved]
